FAERS Safety Report 5302632-5 (Version None)
Quarter: 2007Q2

REPORT INFORMATION
  Report Type: 
  Country: None (occurrence: None)
  Receive Date: 20070419
  Receipt Date: 20070410
  Transmission Date: 20071010
  Serious: Yes (Hospitalization, Other)
  Sender: FDA-Public Use
  Company Number: US-PFIZER INC-2007011316

PATIENT
  Sex: Female

DRUGS (11)
  1. CELEBREX [Suspect]
     Indication: ARTHRITIS
     Dates: start: 20000628, end: 20040801
  2. BEXTRA [Suspect]
     Indication: ARTHRITIS
     Dates: start: 20011101, end: 20040101
  3. VIOXX [Suspect]
     Route: 048
  4. PLAVIX [Concomitant]
  5. VERAPAMIL [Concomitant]
  6. PRANDIN [Concomitant]
  7. METFORMIN HCL [Concomitant]
  8. DITROPAN [Concomitant]
  9. OMEPRAZOLE [Concomitant]
  10. RELAFEN [Concomitant]
  11. HYDROCODONE BITARTRATE + ACETAMINOPHEN [Concomitant]

REACTIONS (4)
  - CARDIAC FAILURE CONGESTIVE [None]
  - CEREBROVASCULAR ACCIDENT [None]
  - MYOCARDIAL INFARCTION [None]
  - TRANSIENT ISCHAEMIC ATTACK [None]
